FAERS Safety Report 8153302-X (Version None)
Quarter: 2012Q1

REPORT INFORMATION
  Report Type: 
  Country: None (occurrence: None)
  Receive Date: 20120221
  Receipt Date: 20120208
  Transmission Date: 20120608
  Serious: Yes (Hospitalization, Other)
  Sender: FDA-Public Use
  Company Number: US-ELI_LILLY_AND_COMPANY-US201202002880

PATIENT
  Sex: Female

DRUGS (6)
  1. LEVOTHYROXINE SODIUM [Concomitant]
  2. OXYCONTIN [Concomitant]
  3. MELOXICAM [Concomitant]
  4. CYMBALTA [Suspect]
     Indication: DEPRESSION
     Dosage: 60 MG, UNKNOWN
     Dates: start: 20090101, end: 20120101
  5. XANAX                                   /USA/ [Concomitant]
  6. LYRICA [Concomitant]
     Dosage: UNK

REACTIONS (2)
  - JAUNDICE [None]
  - BILE DUCT CANCER [None]
